FAERS Safety Report 10050138 (Version 2)
Quarter: 2015Q1

REPORT INFORMATION
  Report Type: Spontaneous
  Country: IL (occurrence: IL)
  Receive Date: 20140401
  Receipt Date: 20150212
  Transmission Date: 20150720
  Serious: Yes (Other)
  Sender: FDA-Public Use
  Company Number: IL-ASTRAZENECA-2014SE20210

PATIENT
  Age: 16 Year
  Sex: Male
  Weight: 55 kg

DRUGS (7)
  1. PROPOFOL. [Suspect]
     Active Substance: PROPOFOL
     Indication: SEDATIVE THERAPY
     Dosage: 25-32 ML/H; TOTAL DOSE OF 1,879 MG OVER 67 HOURS
     Route: 042
  2. PROPOFOL. [Suspect]
     Active Substance: PROPOFOL
     Indication: GENERALISED TONIC-CLONIC SEIZURE
     Dosage: 25-32 ML/H; TOTAL DOSE OF 1,879 MG OVER 67 HOURS
     Route: 042
  3. PENTOTHAL [Concomitant]
     Active Substance: THIOPENTAL SODIUM
     Indication: GENERALISED TONIC-CLONIC SEIZURE
  4. MIDAZOLAM [Concomitant]
     Active Substance: MIDAZOLAM\MIDAZOLAM HYDROCHLORIDE
     Indication: GENERALISED TONIC-CLONIC SEIZURE
  5. PHENYTOIN. [Concomitant]
     Active Substance: PHENYTOIN
     Indication: GENERALISED TONIC-CLONIC SEIZURE
  6. DIAZEPAM. [Concomitant]
     Active Substance: DIAZEPAM
     Indication: GENERALISED TONIC-CLONIC SEIZURE
  7. LEVETIRACETAM. [Concomitant]
     Active Substance: LEVETIRACETAM
     Indication: GENERALISED TONIC-CLONIC SEIZURE

REACTIONS (2)
  - Propofol infusion syndrome [Recovered/Resolved]
  - Off label use [Unknown]
